FAERS Safety Report 6693929-5 (Version None)
Quarter: 2010Q2

REPORT INFORMATION
  Report Type: 
  Country: None (occurrence: None)
  Receive Date: 20100423
  Receipt Date: 20100413
  Transmission Date: 20101027
  Serious: Yes (Hospitalization)
  Sender: FDA-Public Use
  Company Number: DE-PFIZER INC-2009264250

PATIENT
  Age: 70 Year
  Sex: Male
  Weight: 76 kg

DRUGS (8)
  1. INSPRA [Suspect]
     Indication: CARDIAC FAILURE
     Dosage: 25 MG, 1X/DAY
     Route: 048
     Dates: start: 20071101, end: 20090723
  2. ACETYLSALICYLIC ACID [Suspect]
     Indication: CORONARY ARTERY DISEASE
     Dosage: 100 MG, 1X/DAY
     Route: 048
     Dates: start: 20070101
  3. AQUAPHOR TABLET [Suspect]
     Indication: HYPERTENSION
     Dosage: 10 MG, 1X/DAY
     Route: 048
     Dates: start: 20090620, end: 20090723
  4. CLEXANE [Suspect]
     Indication: CARDIAC PACEMAKER INSERTION
     Dosage: 80 MG, 2X/DAY
     Route: 058
     Dates: start: 20090605
  5. FURORESE [Suspect]
     Indication: OEDEMA PERIPHERAL
     Dosage: 25 MG, 2X/DAY
     Route: 048
     Dates: start: 20090620
  6. RAMIPRIL [Suspect]
     Indication: HYPERTENSION
     Dosage: 2.5 MG, 1X/DAY
     Route: 048
     Dates: start: 20050101, end: 20090723
  7. BISOPROLOL [Concomitant]
     Indication: CARDIAC FAILURE
     Dosage: 2.5 MG, 1X/DAY
     Route: 048
     Dates: start: 20030101
  8. DIGITOXIN [Concomitant]
     Indication: CARDIAC FAILURE
     Dosage: 0.07 MG, 1X/DAY
     Route: 048
     Dates: start: 20030101

REACTIONS (3)
  - HAEMORRHAGE URINARY TRACT [None]
  - HYPOTENSION [None]
  - RENAL FAILURE ACUTE [None]
